FAERS Safety Report 9523353 (Version 1)
Quarter: 2013Q1

REPORT INFORMATION
  Report Type: Spontaneous
  Country: US (occurrence: None)
  Receive Date: 20130305
  Receipt Date: 20130305
  Transmission Date: 20140127
  Serious: Yes (Hospitalization)
  Sender: FDA-Public Use
  Company Number: 163-21880-12012535

PATIENT
  Age: 68 Year
  Sex: Female

DRUGS (12)
  1. REVLIMID [Suspect]
     Indication: PLASMA CELL MYELOMA
     Dosage: 10 MG, 1 IN 1 D, PO
     Route: 048
     Dates: start: 200907
  2. SIMVASTATIN [Concomitant]
  3. HYDROCODONE APAP (PROCET /USA/) (UNKNOWN) [Concomitant]
  4. VALACYCLOVIR (VALACICLOVIR) (UNKNOWN)? [Concomitant]
  5. TRIAMCINOLONE (TRIAMCINOLONE) (UNKNOWN)? [Concomitant]
  6. LEXAPRO (ESCITALOPRAM OXALATE) (UNKNOWN) [Concomitant]
  7. OMEPRAZOLE (OMEPRAZOLE) (UNKNOWN) [Concomitant]
  8. LISINOPRIL (LISINOPRIL) (UNKNOWN) [Concomitant]
  9. CARVEDILOL (CARVEDILOL) (UNKNOWN) [Concomitant]
  10. AMITRIPTYLINE (AMITRIPTYLINE) (UNKNOWN) [Concomitant]
  11. LEVOFLOXACIN (LEVOFLOXACIN) (UNKNOWN) [Concomitant]
  12. FURSEMIDE (FUROSEMIDE) (UNKNOWN) [Concomitant]

REACTIONS (2)
  - Dyspnoea [None]
  - Herpes zoster [None]
